FAERS Safety Report 8479025-5 (Version None)
Quarter: 2012Q2

REPORT INFORMATION
  Report Type: 
  Country: None (occurrence: None)
  Receive Date: 20120629
  Receipt Date: 20120627
  Transmission Date: 20120825
  Serious: Yes (Hospitalization)
  Sender: FDA-Public Use
  Company Number: DE-SANOFI-AVENTIS-2012SA045732

PATIENT
  Age: 44 Year
  Sex: Female
  Weight: 64 kg

DRUGS (1)
  1. TAXOTERE [Suspect]
     Indication: BREAST CANCER
     Dosage: EINMALIG
     Route: 042
     Dates: start: 20120611, end: 20120611

REACTIONS (4)
  - LEUKOPENIA [None]
  - SKIN DISCOMFORT [None]
  - PARAPARESIS [None]
  - PAIN [None]
